FAERS Safety Report 5567166-1 (Version None)
Quarter: 2007Q4

REPORT INFORMATION
  Report Type: 
  Country: None (occurrence: None)
  Receive Date: 20071219
  Receipt Date: 20071211
  Transmission Date: 20080405
  Serious: Yes (Hospitalization)
  Sender: FDA-Public Use
  Company Number: US-ELI_LILLY_AND_COMPANY-US200711004791

PATIENT
  Sex: Male

DRUGS (2)
  1. HUMULIN N [Suspect]
     Indication: DIABETES MELLITUS
  2. HUMULIN R [Suspect]
     Indication: DIABETES MELLITUS

REACTIONS (1)
  - RENAL FAILURE [None]
